FAERS Safety Report 22378884 (Version 1)
Quarter: 2023Q2

REPORT INFORMATION
  Report Type: Spontaneous
  Country: GB (occurrence: None)
  Receive Date: 20230529
  Receipt Date: 20230529
  Transmission Date: 20230721
  Serious: Yes (Other)
  Sender: FDA-Public Use
  Company Number: GB-ROCHE-3354369

PATIENT
  Age: 84 Year
  Sex: Male

DRUGS (1)
  1. VABYSMO [Suspect]
     Active Substance: FARICIMAB-SVOA
     Indication: Neovascular age-related macular degeneration
     Route: 065
     Dates: start: 20230404

REACTIONS (2)
  - Corneal oedema [Recovered/Resolved]
  - Corneal endotheliitis [Recovered/Resolved]

NARRATIVE: CASE EVENT DATE: 20230405
